FAERS Safety Report 8590541-8 (Version None)
Quarter: 2012Q3

REPORT INFORMATION
  Report Type: 
  Country: None (occurrence: None)
  Receive Date: 20120813
  Receipt Date: 20120803
  Transmission Date: 20120928
  Serious: Yes (Hospitalization)
  Sender: FDA-Public Use
  Company Number: GB-ROCHE-1067261

PATIENT
  Sex: Female
  Weight: 72 kg

DRUGS (8)
  1. METHOTREXATE [Concomitant]
     Dates: end: 20110824
  2. MABTHERA [Suspect]
     Indication: PRODUCT USED FOR UNKNOWN INDICATION
     Dates: start: 20110224, end: 20110310
  3. DEXAMETHASONE [Concomitant]
  4. OMEPRAZOLE [Concomitant]
  5. DOMPERIDONE [Concomitant]
  6. AMITRIPTYLINE HCL [Concomitant]
  7. MISOPROSTOL [Concomitant]
  8. NAPROXEN [Concomitant]

REACTIONS (2)
  - STAPHYLOCOCCAL BACTERAEMIA [None]
  - METASTASES TO SPINE [None]
